FAERS Safety Report 23713625 (Version 1)
Quarter: 2024Q2

REPORT INFORMATION
  Report Type: Report from Study
  Country: CA (occurrence: CA)
  Receive Date: 20240405
  Receipt Date: 20240405
  Transmission Date: 20240716
  Serious: Yes (Other)
  Sender: FDA-Public Use
  Company Number: CA-Merck Healthcare KGaA-2024018685

PATIENT
  Sex: Male

DRUGS (1)
  1. SAIZEN [Suspect]
     Active Substance: SOMATROPIN
     Indication: Product used for unknown indication
     Dates: start: 20121016

REACTIONS (5)
  - Illness [Unknown]
  - Bladder disorder [Unknown]
  - Renal disorder [Unknown]
  - Large intestine anastomosis [Unknown]
  - Colectomy [Unknown]
